FAERS Safety Report 14850215 (Version 4)
Quarter: 2018Q3

REPORT INFORMATION
  Report Type: Spontaneous
  Country: JP (occurrence: JP)
  Receive Date: 20180505
  Receipt Date: 20180903
  Transmission Date: 20181010
  Serious: Yes (Hospitalization, Other)
  Sender: FDA-Public Use
  Company Number: JP-ROCHE-2118419

PATIENT
  Age: 60 Year
  Sex: Female
  Weight: 62 kg

DRUGS (4)
  1. LUCENTIS [Suspect]
     Active Substance: RANIBIZUMAB
     Indication: MACULAR OEDEMA
     Route: 031
     Dates: start: 20171003
  2. LUCENTIS [Suspect]
     Active Substance: RANIBIZUMAB
     Route: 031
     Dates: start: 20171121
  3. LUCENTIS [Suspect]
     Active Substance: RANIBIZUMAB
     Indication: RETINAL VEIN OCCLUSION
     Route: 031
     Dates: start: 20170829
  4. CARNACULIN [Concomitant]
     Active Substance: KALLIDINOGENASE
     Indication: ARTERIOSCLEROSIS
     Route: 048
     Dates: start: 20170823

REACTIONS (6)
  - Brain stem infarction [Recovering/Resolving]
  - Hemiparesis [Unknown]
  - Disease progression [Recovering/Resolving]
  - Retinal vein occlusion [Recovering/Resolving]
  - Arteriosclerosis [Unknown]
  - Muscular weakness [Unknown]

NARRATIVE: CASE EVENT DATE: 201710
